FAERS Safety Report 10361162 (Version 1)
Quarter: 2014Q3

REPORT INFORMATION
  Report Type: Other
  Country: FR (occurrence: FR)
  Receive Date: 20140804
  Receipt Date: 20140804
  Transmission Date: 20150326
  Serious: Yes (Hospitalization)
  Sender: FDA-Public Use
  Company Number: FR-MYLAN-2014M1000225

PATIENT

DRUGS (11)
  1. COVERSYL                           /00790702/ [Suspect]
     Active Substance: PERINDOPRIL
     Indication: HYPERTENSION
     Dosage: 10 MG, QD
     Route: 048
     Dates: start: 20100104, end: 20100113
  2. CLAMOXYL                           /00249601/ [Suspect]
     Active Substance: AMOXICILLIN\CLAVULANIC ACID
     Dosage: 500 MG, BID
     Dates: start: 20100104, end: 20100113
  3. DITROPAN [Suspect]
     Active Substance: OXYBUTYNIN CHLORIDE
     Indication: URINARY INCONTINENCE
     Dosage: 5 MG, BID
     Dates: start: 20091211, end: 20100113
  4. LEXOMIL [Suspect]
     Active Substance: BROMAZEPAM
     Indication: ANXIETY
     Dosage: UNK, PRN
     Route: 048
     Dates: start: 20090819, end: 20100113
  5. DEBRIDAT                           /00465201/ [Concomitant]
     Active Substance: TRIMEBUTINE MALEATE
  6. VASTAREL [Concomitant]
     Active Substance: TRIMETAZIDINE DIHYDROCHLORIDE
  7. DIMETANE [Suspect]
     Active Substance: BROMPHENIRAMINE MALEATE
     Indication: ANTITUSSIVE THERAPY
     Dosage: UNK, PRN
     Dates: start: 20100104, end: 20100113
  8. COAPROVEL [Concomitant]
     Active Substance: HYDROCHLOROTHIAZIDE\IRBESARTAN
  9. AERIUS [Suspect]
     Active Substance: DESLORATADINE
     Indication: PRURITUS
     Dosage: 5 MG, QD
     Route: 048
     Dates: start: 20091211, end: 20100113
  10. PROPOFOL. [Suspect]
     Active Substance: PROPOFOL
     Indication: ANALGESIC INTERVENTION SUPPORTIVE THERAPY
     Dosage: UNK, PRN
     Route: 048
     Dates: start: 20091211, end: 20100113
  11. BISOPROLOL [Suspect]
     Active Substance: BISOPROLOL
     Dosage: 10 MG, QD
     Dates: start: 20091221, end: 20100113

REACTIONS (4)
  - Renal failure [None]
  - Drug reaction with eosinophilia and systemic symptoms [Recovering/Resolving]
  - Right ventricular failure [None]
  - Skin exfoliation [None]

NARRATIVE: CASE EVENT DATE: 20100112
